FAERS Safety Report 6106711-4 (Version None)
Quarter: 2009Q1

REPORT INFORMATION
  Report Type: 
  Country: None (occurrence: None)
  Receive Date: 20090305
  Receipt Date: 20090227
  Transmission Date: 20090719
  Serious: Yes (Life-Threatening, Hospitalization, Disabling)
  Sender: FDA-Public Use
  Company Number: 2009-00789

PATIENT

DRUGS (7)
  1. VELCADE [Suspect]
     Indication: LYMPHOMA AIDS RELATED
  2. ETOPOSIDE [Suspect]
     Indication: LYMPHOMA AIDS RELATED
  3. RITUXIMAB (RITUXMAB) INJECTION, 375MG/M2 [Suspect]
     Indication: LYMPHOMA AIDS RELATED
  4. IFOSFAMIDE [Suspect]
     Indication: LYMPHOMA AIDS RELATED
  5. MESNEX [Suspect]
     Indication: LYMPHOMA AIDS RELATED
  6. CARBOPLATIN [Suspect]
     Indication: LYMPHOMA AIDS RELATED
  7. DEXAMETHASONE [Suspect]
     Indication: LYMPHOMA AIDS RELATED

REACTIONS (7)
  - ABDOMINAL PAIN [None]
  - HAEMOGLOBIN DECREASED [None]
  - HYPOKALAEMIA [None]
  - HYPOPHOSPHATAEMIA [None]
  - NEUTROPHIL COUNT DECREASED [None]
  - PLATELET COUNT DECREASED [None]
  - WHITE BLOOD CELL COUNT DECREASED [None]
